FAERS Safety Report 5878144-7 (Version None)
Quarter: 2008Q3

REPORT INFORMATION
  Report Type: 
  Country: None (occurrence: None)
  Receive Date: 20080910
  Receipt Date: 20080910
  Transmission Date: 20090109
  Serious: Yes (Life-Threatening, Hospitalization, Disabling)
  Sender: FDA-Public Use
  Company Number: None

PATIENT
  Age: 49 Year
  Sex: Male
  Weight: 84.369 kg

DRUGS (1)
  1. XELODA [Suspect]
     Indication: CHEMOTHERAPY
     Dosage: 500 MG 6X PER DAY FOR 1 WEEK
     Dates: start: 20080528, end: 20080604

REACTIONS (23)
  - AMNESIA [None]
  - CHAPPED LIPS [None]
  - COMA [None]
  - DELIRIUM [None]
  - DRUG HYPERSENSITIVITY [None]
  - DYSPHAGIA [None]
  - FOAMING AT MOUTH [None]
  - HYPERKERATOSIS [None]
  - HYPOAESTHESIA ORAL [None]
  - LIP HAEMORRHAGE [None]
  - MALAISE [None]
  - OEDEMA MOUTH [None]
  - ORAL INFECTION [None]
  - ORAL PAIN [None]
  - OROPHARYNGEAL BLISTERING [None]
  - PYREXIA [None]
  - SKIN EXFOLIATION [None]
  - SKIN FISSURES [None]
  - SPUTUM DISCOLOURED [None]
  - STOMATITIS [None]
  - SWOLLEN TONGUE [None]
  - WEIGHT DECREASED [None]
  - WHITE BLOOD CELL COUNT DECREASED [None]
